FAERS Safety Report 19504272 (Version 2)
Quarter: 2021Q3

REPORT INFORMATION
  Report Type: Spontaneous
  Country: DE (occurrence: DE)
  Receive Date: 20210707
  Receipt Date: 20210719
  Transmission Date: 20211014
  Serious: Yes (Death, Hospitalization)
  Sender: FDA-Public Use
  Company Number: DE-ABBVIE-21K-062-3979033-00

PATIENT
  Sex: Male

DRUGS (1)
  1. SKYRIZI [Suspect]
     Active Substance: RISANKIZUMAB-RZAA
     Indication: PSORIASIS
     Route: 058
     Dates: start: 20210202

REACTIONS (4)
  - Jaundice [Unknown]
  - Liver function test increased [Not Recovered/Not Resolved]
  - Hepatic cirrhosis [Fatal]
  - Ascites [Unknown]

NARRATIVE: CASE EVENT DATE: 2021
